FAERS Safety Report 5872717-3 (Version None)
Quarter: 2008Q3

REPORT INFORMATION
  Report Type: 
  Country: None (occurrence: None)
  Receive Date: 20080905
  Receipt Date: 20080828
  Transmission Date: 20090109
  Serious: Yes (Other)
  Sender: FDA-Public Use
  Company Number: JP-PFIZER INC-2008069670

PATIENT

DRUGS (3)
  1. MINIPRESS [Suspect]
     Route: 048
  2. BLOPRESS [Concomitant]
  3. DRUG, UNSPECIFIED [Concomitant]

REACTIONS (2)
  - PLATELET COUNT DECREASED [None]
  - PURPURA [None]
